FAERS Safety Report 19203041 (Version 1)
Quarter: 2021Q2

REPORT INFORMATION
  Report Type: Spontaneous
  Country: US (occurrence: US)
  Receive Date: 20210430
  Receipt Date: 20210430
  Transmission Date: 20210717
  Serious: No
  Sender: FDA-Public Use
  Company Number: US-ROCHE-2735236

PATIENT
  Sex: Female

DRUGS (1)
  1. XOFLUZA [Suspect]
     Active Substance: BALOXAVIR MARBOXIL
     Indication: INFLUENZA
     Dosage: TAKE 2 TABLETS AT ONCE AS 80 MG DOSE ;ONGOING: UNKNOWN
     Route: 048
     Dates: start: 202012

REACTIONS (2)
  - Sleep terror [Unknown]
  - Diarrhoea [Unknown]
